FAERS Safety Report 25994460 (Version 1)
Quarter: 2025Q4

REPORT INFORMATION
  Report Type: Report from Study
  Country: US (occurrence: US)
  Receive Date: 20251104
  Receipt Date: 20251104
  Transmission Date: 20260118
  Serious: Yes (Other)
  Sender: CSL BEHRING
  Company Number: US-BEH-2025223703

PATIENT
  Sex: Female
  Weight: 59.41 kg

DRUGS (1)
  1. HIZENTRA [Suspect]
     Active Substance: HUMAN IMMUNOGLOBULIN G
     Indication: Chronic inflammatory demyelinating polyradiculoneuropathy
     Dosage: 20 G, QW
     Route: 058
     Dates: start: 202101

REACTIONS (12)
  - Drug ineffective [Unknown]
  - Throat tightness [Unknown]
  - Oropharyngeal blistering [Unknown]
  - Oropharyngeal pain [Unknown]
  - Oral mucosal blistering [Unknown]
  - Cough [Unknown]
  - Asthma [Unknown]
  - Bronchitis [Unknown]
  - Sinusitis [Unknown]
  - Migraine [Unknown]
  - Fatigue [Unknown]
  - Malaise [Unknown]
